FAERS Safety Report 8273795-7 (Version None)
Quarter: 2012Q2

REPORT INFORMATION
  Report Type: 
  Country: None (occurrence: None)
  Receive Date: 20120411
  Receipt Date: 20120402
  Transmission Date: 20120825
  Serious: Yes (Hospitalization)
  Sender: FDA-Public Use
  Company Number: US-ASTRAZENECA-2012SE09953

PATIENT
  Age: 82 Year
  Sex: Female

DRUGS (3)
  1. HUMALOG [Concomitant]
  2. CRESTOR [Suspect]
     Route: 048
  3. NEXIUM [Suspect]
     Route: 048

REACTIONS (6)
  - COUGH [None]
  - HIATUS HERNIA [None]
  - VIITH NERVE PARALYSIS [None]
  - BRONCHITIS [None]
  - DIABETES MELLITUS [None]
  - BLOOD GLUCOSE INCREASED [None]
